FAERS Safety Report 9721958 (Version 2)
Quarter: 2013Q4

REPORT INFORMATION
  Report Type: Spontaneous
  Country: JP (occurrence: JP)
  Receive Date: 20131202
  Receipt Date: 20131205
  Transmission Date: 20140711
  Serious: Yes (Other)
  Sender: FDA-Public Use
  Company Number: JP-PFIZER INC-2013341206

PATIENT
  Age: 58 Year
  Sex: Male

DRUGS (5)
  1. CISPLATIN [Suspect]
     Indication: SMALL CELL CARCINOMA
     Dosage: 140 MG, ON DAYS 1, 22 AND 43
  2. CARBOPLATIN [Suspect]
     Indication: SMALL CELL CARCINOMA
     Dosage: 450 MG, CYCLIC, FOR 1 DAY
  3. CARBOPLATIN [Suspect]
     Dosage: FOURTH COURSE: 450 MG, FOR 1 DAY
  4. ETOPOSIDE [Suspect]
     Indication: SMALL CELL CARCINOMA
     Dosage: 170 MG, FOR 3 DAYS ON DAYS 1, 22 AND 43
  5. ETOPOSIDE [Suspect]
     Dosage: 135 MG, CYCLIC, FOR 3 DAYS

REACTIONS (4)
  - Bone marrow toxicity [Unknown]
  - Mucosal inflammation [Unknown]
  - Febrile neutropenia [Unknown]
  - Renal failure [Unknown]
